FAERS Safety Report 13743411 (Version 4)
Quarter: 2017Q4

REPORT INFORMATION
  Report Type: Report from Study
  Country: None (occurrence: FR)
  Receive Date: 20170711
  Receipt Date: 20171220
  Transmission Date: 20180320
  Serious: Yes (Death, Life-Threatening, Hospitalization)
  Sender: FDA-Public Use
  Company Number: FR-ABBVIE-17P-056-2028577-00

PATIENT
  Age: 63 Year
  Sex: Female
  Weight: 69.4 kg

DRUGS (17)
  1. RASBURICASE [Concomitant]
     Active Substance: RASBURICASE
     Indication: PROPHYLAXIS
     Route: 042
     Dates: start: 20170502, end: 20170502
  2. NORMAL SALINE SOLUTION (0.9% SODIUM CHLORIDE) [Concomitant]
     Indication: TUMOUR LYSIS SYNDROME
     Route: 042
     Dates: start: 20170424, end: 20170425
  3. GRANOCYTES [Concomitant]
     Active Substance: LENOGRASTIM
     Dosage: 34 UG
     Route: 058
     Dates: start: 20170628, end: 20170629
  4. RASBURICASE [Concomitant]
     Active Substance: RASBURICASE
     Indication: TUMOUR LYSIS SYNDROME
     Route: 042
     Dates: start: 20170424, end: 20170424
  5. VENETOCLAX. [Suspect]
     Active Substance: VENETOCLAX
     Indication: CHRONIC LYMPHOCYTIC LEUKAEMIA
     Route: 048
     Dates: start: 20170424, end: 20170501
  6. VENETOCLAX. [Suspect]
     Active Substance: VENETOCLAX
     Route: 048
     Dates: start: 20170502, end: 20170508
  7. ALLOPURINOL. [Concomitant]
     Active Substance: ALLOPURINOL
     Indication: PROPHYLAXIS
  8. VALGANCICLOVIR. [Concomitant]
     Active Substance: VALGANCICLOVIR
     Indication: PYREXIA
     Route: 048
     Dates: start: 20170627, end: 20170630
  9. GRANOCYTES [Concomitant]
     Active Substance: LENOGRASTIM
     Indication: NEUTROPENIA
     Dosage: 34 UG
     Route: 058
     Dates: start: 20170530, end: 20170603
  10. ROMIPLOSTIM [Concomitant]
     Active Substance: ROMIPLOSTIM
     Indication: BONE MARROW FAILURE
     Route: 058
     Dates: start: 20170629, end: 20170629
  11. VENETOCLAX. [Suspect]
     Active Substance: VENETOCLAX
     Route: 048
     Dates: start: 20170523, end: 20170526
  12. ALLOPURINOL. [Concomitant]
     Active Substance: ALLOPURINOL
     Indication: TUMOUR LYSIS SYNDROME
     Route: 048
     Dates: start: 20170421, end: 20170701
  13. NEUROTIN [Concomitant]
     Active Substance: GABAPENTIN
     Indication: PAIN
  14. VENETOCLAX. [Suspect]
     Active Substance: VENETOCLAX
     Route: 048
     Dates: start: 20170509, end: 20170522
  15. NORMAL SALINE SOLUTION (0.9% SODIUM CHLORIDE) [Concomitant]
     Indication: PROPHYLAXIS
     Route: 042
     Dates: start: 20170502, end: 20170503
  16. NEUROTIN [Concomitant]
     Active Substance: GABAPENTIN
     Indication: HERPES ZOSTER
     Route: 048
     Dates: start: 201403, end: 20170701
  17. PIPERACILLINE [Concomitant]
     Active Substance: PIPERACILLIN SODIUM
     Indication: PYREXIA
     Route: 042
     Dates: start: 20170629, end: 20170629

REACTIONS (1)
  - Haemorrhagic disorder [Fatal]

NARRATIVE: CASE EVENT DATE: 20170628
